FAERS Safety Report 23243226 (Version 1)
Quarter: 2023Q4

REPORT INFORMATION
  Report Type: Report from Study
  Country: BR (occurrence: BR)
  Receive Date: 20231130
  Receipt Date: 20231130
  Transmission Date: 20240110
  Serious: Yes (Hospitalization, Other)
  Sender: FDA-Public Use
  Company Number: BR-AstraZeneca-CH-00516496A

PATIENT
  Sex: Female
  Weight: 74 kg

DRUGS (2)
  1. SOLIRIS [Suspect]
     Active Substance: ECULIZUMAB
     Indication: Paroxysmal nocturnal haemoglobinuria
     Dosage: 600 MILLIGRAM, QW
     Route: 042
     Dates: start: 20141219, end: 20150109
  2. SOLIRIS [Suspect]
     Active Substance: ECULIZUMAB
     Dosage: 900 MILLIGRAM, Q2W
     Route: 042
     Dates: start: 20150116

REACTIONS (10)
  - Malaise [Unknown]
  - Haemorrhage [Recovered/Resolved]
  - Cholelithiasis [Unknown]
  - Abdominal pain upper [Recovering/Resolving]
  - Menstruation irregular [Unknown]
  - Product dose omission issue [Unknown]
  - Endometriosis [Unknown]
  - Illness [Unknown]
  - Asthenia [Recovered/Resolved]
  - Viral infection [Unknown]
